FAERS Safety Report 20805079 (Version 2)
Quarter: 2022Q2

REPORT INFORMATION
  Report Type: Spontaneous
  Country: US (occurrence: US)
  Receive Date: 20220509
  Receipt Date: 20220530
  Transmission Date: 20220721
  Serious: No
  Sender: FDA-Public Use
  Company Number: US-BRISTOL-MYERS SQUIBB COMPANY-2022-024765

PATIENT
  Age: 82 Year
  Sex: Male

DRUGS (2)
  1. REVLIMID [Suspect]
     Active Substance: LENALIDOMIDE
     Indication: Plasma cell myeloma
     Dosage: FREQUENCY-ONCE DAILY 21 DAYS ON AND 7 DAYS OFF
     Route: 048
     Dates: end: 20220323
  2. REVLIMID [Suspect]
     Active Substance: LENALIDOMIDE
     Dosage: REVLIMID DOSE WAS DECREASED TO 20MG FROM 25MG TODAY DUE TO LOWER BLOOD COUNT.
     Route: 048
     Dates: start: 20220330

REACTIONS (3)
  - Full blood count abnormal [Unknown]
  - Constipation [Unknown]
  - Pain [Unknown]
